FAERS Safety Report 8805116 (Version 1)
Quarter: 2012Q4

REPORT INFORMATION
  Report Type: 
  Country: FR (occurrence: FR)
  Receive Date: 20120924
  Receipt Date: 20120924
  Transmission Date: 20130627
  Serious: Yes (Hospitalization, Other)
  Sender: FDA-Public Use
  Company Number: FR-ELI_LILLY_AND_COMPANY-FR201207004511

PATIENT
  Age: 74 Year
  Sex: Male
  Weight: 57 kg

DRUGS (7)
  1. GEMZAR [Suspect]
     Indication: BLADDER CANCER
     Dosage: UNK, unknown
     Route: 042
     Dates: start: 20120423, end: 20120614
  2. GEMZAR [Suspect]
     Dosage: UNK, unknown
     Dates: start: 20120607
  3. GEMZAR [Suspect]
     Dosage: UNK, unknown
     Dates: start: 20120614
  4. CARBOPLATIN [Concomitant]
     Indication: BLADDER CANCER
     Dosage: UNK, unknown
     Dates: start: 20120607
  5. CISPLATIN [Concomitant]
     Indication: BLADDER CANCER
     Dosage: UNK
     Dates: start: 20120428
  6. SOLUMEDROL [Concomitant]
     Dosage: 120 mg, UNK
  7. ZOPHREN [Concomitant]
     Dosage: 8 mg, UNK

REACTIONS (8)
  - Dermatomyositis [Recovering/Resolving]
  - Renal failure [Recovering/Resolving]
  - Peripheral sensory neuropathy [Unknown]
  - Dysaesthesia [Unknown]
  - Pyelonephritis [Unknown]
  - Hepatocellular injury [Unknown]
  - Skin lesion [Unknown]
  - Vitamin D deficiency [Unknown]
